FAERS Safety Report 7090962-9 (Version None)
Quarter: 2010Q4

REPORT INFORMATION
  Report Type: 
  Country: None (occurrence: None)
  Receive Date: 20101109
  Receipt Date: 20101027
  Transmission Date: 20110411
  Serious: Yes (Other)
  Sender: FDA-Public Use
  Company Number: US-SANOFI-AVENTIS-2010SA048108

PATIENT
  Age: 73 Year
  Sex: Female

DRUGS (7)
  1. MULTAQ [Suspect]
     Indication: ATRIAL FIBRILLATION
     Route: 048
     Dates: start: 20100301, end: 20101001
  2. MULTAQ [Suspect]
     Route: 048
     Dates: start: 20101001, end: 20101028
  3. MULTAQ [Suspect]
     Route: 048
     Dates: start: 20101029
  4. COUMADIN [Concomitant]
  5. LIPITOR [Concomitant]
  6. TOPROL-XL [Concomitant]
     Indication: ESSENTIAL TREMOR
  7. DIGOXIN [Concomitant]

REACTIONS (6)
  - ATRIAL FIBRILLATION [None]
  - DIZZINESS [None]
  - DRUG LEVEL FLUCTUATING [None]
  - GASTROINTESTINAL DISORDER [None]
  - TREMOR [None]
  - UNDERDOSE [None]
